FAERS Safety Report 20573742 (Version 5)
Quarter: 2022Q2

REPORT INFORMATION
  Report Type: Spontaneous
  Country: US (occurrence: US)
  Receive Date: 20220309
  Receipt Date: 20220426
  Transmission Date: 20220721
  Serious: Yes (Other)
  Sender: FDA-Public Use
  Company Number: US-009507513-2203USA001179

PATIENT
  Sex: Male

DRUGS (3)
  1. KEYTRUDA [Suspect]
     Active Substance: PEMBROLIZUMAB
     Indication: Adenocarcinoma of colon
     Dosage: UNK
     Route: 042
     Dates: start: 20210806, end: 2021
  2. KEYTRUDA [Suspect]
     Active Substance: PEMBROLIZUMAB
     Dosage: UNK
     Route: 042
     Dates: start: 2021
  3. CELLCEPT [Suspect]
     Active Substance: MYCOPHENOLATE MOFETIL
     Dosage: 1000 MG, BID

REACTIONS (24)
  - Immunosuppression [Unknown]
  - Intestinal obstruction [Unknown]
  - Acute kidney injury [Recovering/Resolving]
  - Immune-mediated enterocolitis [Unknown]
  - Hepatitis [Unknown]
  - Hypothyroidism [Unknown]
  - Hepatic enzyme increased [Not Recovered/Not Resolved]
  - COVID-19 [Recovered/Resolved]
  - Rash pruritic [Not Recovered/Not Resolved]
  - Laboratory test abnormal [Not Recovered/Not Resolved]
  - Adverse drug reaction [Unknown]
  - Gastrointestinal stoma complication [Unknown]
  - Rash maculo-papular [Not Recovered/Not Resolved]
  - Diarrhoea [Recovering/Resolving]
  - Asthenia [Unknown]
  - Dyspnoea [Unknown]
  - Fatigue [Unknown]
  - Underweight [Unknown]
  - Hypertransaminasaemia [Unknown]
  - Rectal discharge [Unknown]
  - Stoma site inflammation [Unknown]
  - Testicular pain [Unknown]
  - Rash erythematous [Unknown]
  - White blood cell count abnormal [Unknown]

NARRATIVE: CASE EVENT DATE: 20210101
